FAERS Safety Report 4987973-3 (Version None)
Quarter: 2006Q2

REPORT INFORMATION
  Report Type: 
  Country: None (occurrence: None)
  Receive Date: 20060424
  Receipt Date: 20060414
  Transmission Date: 20061013
  Serious: Yes (Hospitalization)
  Sender: FDA-Public Use
  Company Number: HQWYE834814APR06

PATIENT
  Age: 73 Year
  Sex: Female

DRUGS (5)
  1. CORDARONE [Suspect]
     Dosage: 200 MG 1X PER 1 DAY ORAL
     Route: 048
  2. ACETAMINOPHEN [Concomitant]
  3. LEVOTHYROXINE SODIUM [Concomitant]
  4. POTASSIUM CHLORIDE [Concomitant]
  5. FUROSEMIDE [Concomitant]

REACTIONS (6)
  - ASTHMA [None]
  - BRONCHIAL OBSTRUCTION [None]
  - CONDITION AGGRAVATED [None]
  - CREPITATIONS [None]
  - PHYSICAL EXAMINATION ABNORMAL [None]
  - PRODUCTIVE COUGH [None]
